FAERS Safety Report 20055104 (Version 1)
Quarter: 2021Q4

REPORT INFORMATION
  Report Type: Spontaneous
  Country: US (occurrence: None)
  Receive Date: 20211110
  Receipt Date: 20211110
  Transmission Date: 20220304
  Serious: Yes (Other)
  Sender: FDA-Public Use
  Company Number: None

PATIENT
  Age: 55 Year
  Sex: Female
  Weight: 70.2 kg

DRUGS (2)
  1. GAMUNEX-C [Suspect]
     Active Substance: HUMAN IMMUNOGLOBULIN G
     Indication: Chronic inflammatory demyelinating polyradiculoneuropathy
     Dosage: OTHER FREQUENCY : QDX 4DAYS Q4WEEKS;?
     Route: 042
     Dates: start: 20181217
  2. GAMUNEX [Suspect]
     Active Substance: HUMAN IMMUNOGLOBULIN G
     Indication: Chronic inflammatory demyelinating polyradiculoneuropathy
     Dosage: OTHER FREQUENCY : QDX4DAYS X4WEEKS;?
     Route: 042
     Dates: start: 20181217

REACTIONS (3)
  - Migraine [None]
  - Lymphadenopathy [None]
  - Respiratory disorder [None]

NARRATIVE: CASE EVENT DATE: 20211110
